FAERS Safety Report 11947322 (Version 1)
Quarter: 2016Q1

REPORT INFORMATION
  Report Type: Spontaneous
  Country: BR (occurrence: BR)
  Receive Date: 20160125
  Receipt Date: 20160125
  Transmission Date: 20160526
  Serious: Yes (Other)
  Sender: FDA-Public Use
  Company Number: BR-SA-2016SA009823

PATIENT
  Sex: Female

DRUGS (1)
  1. LANTUS [Suspect]
     Active Substance: INSULIN GLARGINE
     Route: 065
     Dates: start: 2010

REACTIONS (3)
  - Osteoarthritis [Unknown]
  - Diabetic nephropathy [Unknown]
  - Anxiety [Unknown]

NARRATIVE: CASE EVENT DATE: 2011
